FAERS Safety Report 9695205 (Version 3)
Quarter: 2014Q1

REPORT INFORMATION
  Report Type: Report from Study
  Country: EG (occurrence: EG)
  Receive Date: 20131119
  Receipt Date: 20140203
  Transmission Date: 20141002
  Serious: Yes (Other)
  Sender: FDA-Public Use
  Company Number: EG-ROCHE-1302589

PATIENT
  Age: 66 Year
  Sex: Female

DRUGS (3)
  1. PEGASYS [Suspect]
     Indication: HEPATITIS C
     Route: 058
     Dates: start: 20130817
  2. COPEGUS [Suspect]
     Indication: HEPATITIS C
     Route: 048
     Dates: start: 20130817
  3. FOLIC ACID [Concomitant]
     Route: 048

REACTIONS (3)
  - Oedema peripheral [Recovering/Resolving]
  - Confusional state [Recovering/Resolving]
  - Abdominal pain upper [Recovered/Resolved]
